FAERS Safety Report 5820868-1 (Version None)
Quarter: 2008Q3

REPORT INFORMATION
  Report Type: 
  Country: None (occurrence: None)
  Receive Date: 20080718
  Receipt Date: 20080718
  Transmission Date: 20090109
  Serious: Yes (Other)
  Sender: FDA-Public Use
  Company Number: None

PATIENT
  Age: 54 Year
  Sex: Male
  Weight: 99.7913 kg

DRUGS (1)
  1. BENZTROPINE MESYLATE [Suspect]
     Indication: RESTLESS LEGS SYNDROME
     Dosage: 1-1/2 TAB TWICE DAILY PO
     Route: 048
     Dates: start: 20080713, end: 20080713

REACTIONS (8)
  - ABNORMAL BEHAVIOUR [None]
  - CONFUSIONAL STATE [None]
  - DISTURBANCE IN ATTENTION [None]
  - DRUG INEFFECTIVE [None]
  - DYSKINESIA [None]
  - INCOHERENT [None]
  - INCORRECT DOSE ADMINISTERED [None]
  - INSOMNIA [None]
